FAERS Safety Report 9766272 (Version 1)
Quarter: 2013Q4

REPORT INFORMATION
  Report Type: Spontaneous
  Country: US (occurrence: US)
  Receive Date: 20131217
  Receipt Date: 20131217
  Transmission Date: 20140711
  Serious: No
  Sender: FDA-Public Use
  Company Number: US-GLAXOSMITHKLINE-A1024405A

PATIENT
  Age: 69 Year
  Sex: Male

DRUGS (1)
  1. VOTRIENT [Suspect]
     Indication: RENAL CELL CARCINOMA
     Dosage: 800MG PER DAY
     Route: 048
     Dates: start: 201304

REACTIONS (12)
  - Abdominal pain upper [Not Recovered/Not Resolved]
  - Fatigue [Recovering/Resolving]
  - Palmar-plantar erythrodysaesthesia syndrome [Unknown]
  - Pain in extremity [Recovering/Resolving]
  - Dysgeusia [Unknown]
  - Eating disorder [Unknown]
  - Stomatitis [Unknown]
  - Oral mucosal erythema [Unknown]
  - Local swelling [Not Recovered/Not Resolved]
  - Diarrhoea [Recovering/Resolving]
  - Erythema [Recovering/Resolving]
  - Urticaria [Not Recovered/Not Resolved]
